FAERS Safety Report 7949567-7 (Version None)
Quarter: 2011Q4

REPORT INFORMATION
  Report Type: 
  Country: None (occurrence: None)
  Receive Date: 20111130
  Receipt Date: 20111122
  Transmission Date: 20120403
  Serious: Yes (Other)
  Sender: FDA-Public Use
  Company Number: US-AMGEN-USASP2011062178

PATIENT
  Age: 41 Week
  Sex: Female
  Weight: 3.769 kg

DRUGS (8)
  1. ZANTAC [Concomitant]
     Dosage: 150 MG, BID
     Route: 064
  2. ENBREL [Suspect]
     Dosage: 50 MG, QWK
     Route: 064
     Dates: start: 20091101
  3. LOTEMAX [Concomitant]
     Dosage: UNK UNK, QD
     Route: 064
  4. ENBREL [Suspect]
     Dosage: 50 MG, QWK
     Route: 064
     Dates: start: 20091101
  5. PRENATAL                           /00231801/ [Concomitant]
     Dosage: UNK UNK, QD
     Route: 064
  6. ASPIRIN [Concomitant]
     Dosage: 81 MG, QD
     Route: 064
     Dates: start: 20110201, end: 20111101
  7. FOLIC ACID [Concomitant]
     Dosage: 400 MG, QD
     Route: 064
     Dates: start: 20101001
  8. COLACE [Concomitant]
     Dosage: 100 MG, BID

REACTIONS (3)
  - CARDIAC MURMUR [None]
  - MECONIUM IN AMNIOTIC FLUID [None]
  - NEONATAL RESPIRATORY DISTRESS SYNDROME [None]
